FAERS Safety Report 15932784 (Version 1)
Quarter: 2019Q1

REPORT INFORMATION
  Report Type: Report from Study
  Country: CA (occurrence: CA)
  Receive Date: 20190207
  Receipt Date: 20190207
  Transmission Date: 20190417
  Serious: No
  Sender: FDA-Public Use
  Company Number: CA-ROCHE-2081119

PATIENT
  Age: 45 Year
  Sex: Female

DRUGS (2)
  1. RIFAMPIN. [Suspect]
     Active Substance: RIFAMPIN
     Indication: TUBERCULIN TEST POSITIVE
     Dosage: TO BE TAKEN FOR 1 MONTH?NO DOSAGE INFORMATION
     Route: 048
     Dates: start: 20180207
  2. OCREVUS [Suspect]
     Active Substance: OCRELIZUMAB
     Indication: RELAPSING-REMITTING MULTIPLE SCLEROSIS
     Dosage: 1ST DOSE 30 MG/ML?1ST DOSE,300 MG IV Q 2 WEEKSX2 THEN 600MG IV Q6MONTHS
     Route: 042
     Dates: start: 20180222

REACTIONS (5)
  - Rhinorrhoea [Recovering/Resolving]
  - Nasopharyngitis [Recovering/Resolving]
  - Asthenia [Not Recovered/Not Resolved]
  - Infusion related reaction [Recovered/Resolved]
  - Fatigue [Not Recovered/Not Resolved]

NARRATIVE: CASE EVENT DATE: 20180222
